FAERS Safety Report 6650271-6 (Version None)
Quarter: 2010Q1

REPORT INFORMATION
  Report Type: 
  Country: None (occurrence: None)
  Receive Date: 20100322
  Receipt Date: 20100310
  Transmission Date: 20100710
  Serious: Yes (Hospitalization)
  Sender: FDA-Public Use
  Company Number: 2010AL001551

PATIENT
  Sex: Female

DRUGS (8)
  1. PROPRANOLOL [Suspect]
     Indication: POSTOPERATIVE CARE
     Dosage: 5 MG; X1; PO
     Route: 048
     Dates: start: 20100301, end: 20100301
  2. GAVISCON INFANT [Concomitant]
  3. RANITIDINE [Concomitant]
  4. FUROSEMIDE [Concomitant]
  5. SPIRONOLACTONE [Concomitant]
  6. CAPTOPRIL [Concomitant]
  7. ASPIRIN [Concomitant]
  8. MELATONIN [Concomitant]

REACTIONS (2)
  - BRADYCARDIA [None]
  - UNEVALUABLE EVENT [None]
